FAERS Safety Report 5284510-3 (Version None)
Quarter: 2007Q1

REPORT INFORMATION
  Report Type: 
  Country: None (occurrence: None)
  Receive Date: 20061204
  Receipt Date: 20060403
  Transmission Date: 20070707
  Serious: Yes (Hospitalization)
  Sender: FDA-Public Use
  Company Number: 2005AC00022

PATIENT
  Age: 53 Year
  Sex: Female

DRUGS (1)
  1. CEFOTETAN [Suspect]
     Indication: ANTIBIOTIC PROPHYLAXIS

REACTIONS (1)
  - HAEMOLYTIC ANAEMIA [None]
